FAERS Safety Report 6467247-4 (Version None)
Quarter: 2009Q4

REPORT INFORMATION
  Report Type: 
  Country: None (occurrence: None)
  Receive Date: 20091118
  Receipt Date: 20090818
  Transmission Date: 20100525
  Serious: Yes (Hospitalization)
  Sender: FDA-Public Use
  Company Number: 2009BI026282

PATIENT
  Age: 58 Year
  Sex: Male

DRUGS (3)
  1. TYSABRI [Suspect]
     Indication: MULTIPLE SCLEROSIS
     Dosage: 300 MG;QM;IV
     Route: 042
     Dates: start: 20090601
  2. AVONEX (PREV.) [Concomitant]
  3. COPAXONE (PREV.) [Concomitant]

REACTIONS (1)
  - SPINAL COLUMN STENOSIS [None]
